FAERS Safety Report 8826931 (Version 1)
Quarter: 2012Q4

REPORT INFORMATION
  Report Type: 
  Country: JP (occurrence: JP)
  Receive Date: 20121008
  Receipt Date: 20121008
  Transmission Date: 20130627
  Serious: Yes (Other)
  Sender: FDA-Public Use
  Company Number: JP-009507513-1210JPN001579

PATIENT
  Sex: Male

DRUGS (2)
  1. GASTER [Suspect]
     Dosage: 20 mg, qd
     Route: 048
  2. ESTRACYT [Suspect]
     Indication: PROSTATE CANCER
     Route: 048

REACTIONS (2)
  - Ageusia [Unknown]
  - Decreased appetite [Unknown]
